FAERS Safety Report 15734381 (Version 2)
Quarter: 2019Q1

REPORT INFORMATION
  Report Type: Spontaneous
  Country: US (occurrence: US)
  Receive Date: 20181218
  Receipt Date: 20190131
  Transmission Date: 20190417
  Serious: Yes (Hospitalization)
  Sender: FDA-Public Use
  Company Number: US-PFIZER INC-2018513021

PATIENT
  Age: 70 Year
  Sex: Female

DRUGS (1)
  1. METHOTREXATE SODIUM. [Suspect]
     Active Substance: METHOTREXATE SODIUM
     Dosage: UNK

REACTIONS (6)
  - Heart rate increased [Unknown]
  - Electrocardiogram abnormal [Unknown]
  - Cardiac disorder [Unknown]
  - Blood pressure increased [Unknown]
  - Dizziness [Unknown]
  - Feeling abnormal [Unknown]
